FAERS Safety Report 9414565 (Version 2)
Quarter: 2013Q3

REPORT INFORMATION
  Report Type: Spontaneous
  Country: FR (occurrence: FR)
  Receive Date: 20130723
  Receipt Date: 20130821
  Transmission Date: 20140515
  Serious: Yes (Hospitalization)
  Sender: FDA-Public Use
  Company Number: FR-BAYER-2013-088436

PATIENT
  Age: 68 Year
  Sex: Male

DRUGS (10)
  1. NEXAVAR [Suspect]
     Indication: RENAL CANCER
     Dosage: UNK
     Route: 048
     Dates: start: 201207, end: 20130412
  2. INLYTA [Suspect]
     Indication: RENAL CANCER
     Dosage: 5 MG, BID
     Route: 048
     Dates: start: 20130511, end: 20130520
  3. TEMERIT [Concomitant]
     Dosage: 5 MG, QD
  4. ESIDREX [Concomitant]
     Dosage: 12.5 MG, QD
  5. APROVEL [Concomitant]
     Dosage: 150 MG, QD
  6. NOVONORM [Concomitant]
     Dosage: 1 MG, UNK, 1 TABLET X 3 DAYS
  7. METFORMINE [Concomitant]
     Dosage: 850 MG, UNK, X 3/DAY
  8. CRESTOR [Concomitant]
     Dosage: 10 MG, QD
  9. GELUPRANE [Concomitant]
     Dosage: 500 MG, UNK, X 6 / DAY
  10. OMEPRAZOLE [Concomitant]
     Dosage: 10 MG, QD

REACTIONS (2)
  - Peripheral ischaemia [Recovering/Resolving]
  - Peripheral artery thrombosis [Recovering/Resolving]
